FAERS Safety Report 9331997 (Version 1)
Quarter: 2013Q2

REPORT INFORMATION
  Report Type: Spontaneous
  Country: US (occurrence: US)
  Receive Date: 20130605
  Receipt Date: 20130605
  Transmission Date: 20140414
  Serious: No
  Sender: FDA-Public Use
  Company Number: US-009507513-1305USA010570

PATIENT
  Age: 56 Year
  Sex: Female

DRUGS (1)
  1. DULERA [Suspect]
     Dosage: UNK
     Route: 055

REACTIONS (15)
  - Drug hypersensitivity [Unknown]
  - Essential hypertension [Unknown]
  - Type 2 diabetes mellitus [Unknown]
  - Arthralgia [Unknown]
  - Arthralgia [Unknown]
  - Hepatic cirrhosis [Unknown]
  - Abdominal pain [Unknown]
  - Depression [Unknown]
  - Bipolar I disorder [Unknown]
  - Chronic obstructive pulmonary disease [Unknown]
  - Post-traumatic stress disorder [Unknown]
  - Back pain [Unknown]
  - Splenomegaly [Unknown]
  - Carpal tunnel syndrome [Unknown]
  - Tobacco user [Unknown]
